FAERS Safety Report 19158340 (Version 3)
Quarter: 2021Q4

REPORT INFORMATION
  Report Type: Spontaneous
  Country: FR (occurrence: FR)
  Receive Date: 20210420
  Receipt Date: 20211111
  Transmission Date: 20220303
  Serious: Yes (Death, Other)
  Sender: FDA-Public Use
  Company Number: FR-SUN PHARMACEUTICAL INDUSTRIES LTD-2021R1-292036

PATIENT
  Age: 30 Year
  Sex: Male

DRUGS (1)
  1. PREGABALIN [Suspect]
     Active Substance: PREGABALIN
     Indication: Substance use
     Dosage: UNK
     Route: 065

REACTIONS (5)
  - Visceral congestion [Fatal]
  - Intentional product misuse [Fatal]
  - Asphyxia [Fatal]
  - Respiratory depression [Fatal]
  - Substance abuse [Fatal]
